FAERS Safety Report 7604440-9 (Version None)
Quarter: 2011Q3

REPORT INFORMATION
  Report Type: 
  Country: None (occurrence: None)
  Receive Date: 20110712
  Receipt Date: 20110712
  Transmission Date: 20111222
  Serious: Yes (Hospitalization, Congenital Anomaly, Other)
  Sender: FDA-Public Use
  Company Number: DE-PFIZER INC-2011147280

PATIENT
  Sex: Female

DRUGS (1)
  1. VENLAFAXINE HCL [Suspect]
     Indication: DEPRESSION
     Dosage: 75 MG, 1X/DAY
     Route: 064

REACTIONS (6)
  - ATRIAL SEPTAL DEFECT [None]
  - NEONATAL RESPIRATORY DISTRESS SYNDROME [None]
  - MATERNAL EXPOSURE DURING PREGNANCY [None]
  - FEEDING DISORDER NEONATAL [None]
  - FOETAL GROWTH RESTRICTION [None]
  - HYPOGLYCAEMIA NEONATAL [None]
